FAERS Safety Report 7598660-X (Version None)
Quarter: 2011Q3

REPORT INFORMATION
  Report Type: 
  Country: None (occurrence: None)
  Receive Date: 20110711
  Receipt Date: 20110630
  Transmission Date: 20111222
  Serious: Yes (Other)
  Sender: FDA-Public Use
  Company Number: IE-BIOGENIDEC-2011BI021386

PATIENT
  Sex: Female

DRUGS (1)
  1. TYSABRI [Suspect]
     Indication: PRODUCT USED FOR UNKNOWN INDICATION

REACTIONS (2)
  - NUCLEAR MAGNETIC RESONANCE IMAGING ABNORMAL [None]
  - PROGRESSIVE MULTIFOCAL LEUKOENCEPHALOPATHY [None]
